FAERS Safety Report 6547147-1 (Version None)
Quarter: 2010Q1

REPORT INFORMATION
  Report Type: 
  Country: None (occurrence: None)
  Receive Date: 20100122
  Receipt Date: 20100119
  Transmission Date: 20100710
  Serious: Yes (Other)
  Sender: FDA-Public Use
  Company Number: US-MERCK-0905USA01619

PATIENT
  Age: 63 Year
  Sex: Female
  Weight: 60 kg

DRUGS (3)
  1. FOSAMAX [Suspect]
     Indication: OSTEOPOROSIS
     Route: 048
     Dates: start: 19960101
  2. FOSAMAX [Suspect]
     Route: 048
     Dates: end: 20051101
  3. FOSAMAX [Suspect]
     Route: 048
     Dates: start: 20051101

REACTIONS (31)
  - ABNORMAL LOSS OF WEIGHT [None]
  - BLOOD CALCIUM INCREASED [None]
  - BLOOD CHOLESTEROL INCREASED [None]
  - BREAST MASS [None]
  - BRONCHITIS CHRONIC [None]
  - CHEST PAIN [None]
  - CHRONIC OBSTRUCTIVE PULMONARY DISEASE [None]
  - COLONIC POLYP [None]
  - COMPLEX PARTIAL SEIZURES [None]
  - COUGH [None]
  - DIVERTICULITIS [None]
  - DIVERTICULITIS INTESTINAL HAEMORRHAGIC [None]
  - DYSPNOEA [None]
  - EAR PAIN [None]
  - FATIGUE [None]
  - HAND FRACTURE [None]
  - HOT FLUSH [None]
  - LIVER FUNCTION TEST ABNORMAL [None]
  - MELANOCYTIC NAEVUS [None]
  - MEMORY IMPAIRMENT [None]
  - NERVOUSNESS [None]
  - OEDEMA [None]
  - OSTEONECROSIS [None]
  - PAIN IN EXTREMITY [None]
  - PANIC ATTACK [None]
  - PELVIC PAIN [None]
  - PRESYNCOPE [None]
  - RECTAL POLYP [None]
  - TEMPOROMANDIBULAR JOINT SYNDROME [None]
  - TOBACCO ABUSE [None]
  - UTERINE DISORDER [None]
